FAERS Safety Report 7678802-8 (Version None)
Quarter: 2011Q3

REPORT INFORMATION
  Report Type: 
  Country: None (occurrence: None)
  Receive Date: 20110811
  Receipt Date: 20110802
  Transmission Date: 20111222
  Serious: Yes (Other)
  Sender: FDA-Public Use
  Company Number: US-ASTRAZENECA-2011SE37214

PATIENT
  Age: 22432 Day
  Sex: Female
  Weight: 52.2 kg

DRUGS (10)
  1. PRAVASTATIN [Concomitant]
  2. AMBIEN [Concomitant]
     Indication: SLEEP DISORDER
     Route: 048
  3. MOBIC [Concomitant]
  4. SEROQUEL [Suspect]
     Indication: AFFECTIVE DISORDER
     Route: 048
     Dates: start: 20030101
  5. CLONAZEPAM [Concomitant]
     Indication: ANXIETY
     Route: 048
  6. SEROQUEL [Suspect]
     Indication: DEPRESSION
     Route: 048
     Dates: start: 20030101
  7. TRAZODONE HCL [Concomitant]
     Indication: AFFECTIVE DISORDER
     Route: 048
     Dates: start: 20080617
  8. ZOLPIDEM [Concomitant]
     Indication: SLEEP DISORDER
     Route: 048
     Dates: start: 20060617
  9. TRAZODONE HCL [Concomitant]
     Indication: SLEEP DISORDER
     Route: 048
     Dates: start: 20080617
  10. FENTANYL [Concomitant]
     Indication: PAIN
     Dosage: 50 MCG/ HOUR Q3D
     Route: 061
     Dates: start: 19990617

REACTIONS (3)
  - HIP FRACTURE [None]
  - FALL [None]
  - ARTHRITIS [None]
